FAERS Safety Report 5382449-6 (Version None)
Quarter: 2007Q3

REPORT INFORMATION
  Report Type: 
  Country: None (occurrence: None)
  Receive Date: 20070705
  Receipt Date: 20061025
  Transmission Date: 20080115
  Serious: Yes (Other)
  Sender: FDA-Public Use
  Company Number: WAES 0610USA13559

PATIENT
  Age: 44 Year
  Sex: Female
  Weight: 83.9154 kg

DRUGS (3)
  1. HYZAAR [Suspect]
     Indication: HYPERTENSION
     Dosage: 50-12.5 MG DAILY PO
     Route: 048
     Dates: end: 20061025
  2. HUMALOG [Concomitant]
  3. LEVOTHYROXINE SODIUM [Concomitant]

REACTIONS (2)
  - PALPITATIONS [None]
  - RASH [None]
